FAERS Safety Report 23906173 (Version 2)
Quarter: 2024Q4

REPORT INFORMATION
  Report Type: Report from Study
  Country: CO (occurrence: CO)
  Receive Date: 20240528
  Receipt Date: 20241204
  Transmission Date: 20250115
  Serious: Yes (Hospitalization)
  Sender: EMD SERONO INC
  Company Number: CO-Merck Healthcare KGaA-2024028024

PATIENT
  Age: 52 Year
  Sex: Female

DRUGS (5)
  1. MAVENCLAD [Suspect]
     Active Substance: CLADRIBINE
     Indication: Multiple sclerosis
     Dosage: YEAR ONE WEEK ONE THERAPY: 2 TABLET ON DAY ONE 1 TABLET FROM DAY 2 TO DAY 5.
     Dates: start: 20210329
  2. MAVENCLAD [Suspect]
     Active Substance: CLADRIBINE
     Dosage: YEAR ONE WEEK 2 THERAPY: 2 TABLET ON DAY ONE 1 TABLET FROM DAY 2 TO DAY 5.
     Dates: start: 20210503
  3. MAVENCLAD [Suspect]
     Active Substance: CLADRIBINE
     Dosage: YEAR 2 WEEK 1 THERAPY: 2 TABLET ON DAY ONE, 1 TABLET FROM DAY 2 TO DAY 5.
     Dates: start: 20220403
  4. MAVENCLAD [Suspect]
     Active Substance: CLADRIBINE
     Dosage: YEAR 2 WEEK 2 THERAPY: 2 TABLET ON DAY ONE, 1 TABLET FROM DAY 2 TO DAY 5.
     Dates: start: 20220508
  5. MAVENCLAD [Suspect]
     Active Substance: CLADRIBINE
     Dosage: YEAR 3 WEEK 2 THERAPY: 2 TABLET ON DAY ONE, 1 TABLET FROM DAY 2 TO DAY 5.?STARTED ON 27-NOV-2024

REACTIONS (2)
  - Eye disorder [Unknown]
  - Pain in extremity [Unknown]

NARRATIVE: CASE EVENT DATE: 20240101
